FAERS Safety Report 22267767 (Version 2)
Quarter: 2023Q2

REPORT INFORMATION
  Report Type: Spontaneous
  Country: US (occurrence: US)
  Receive Date: 20230430
  Receipt Date: 20230525
  Transmission Date: 20230722
  Serious: No
  Sender: FDA-Public Use
  Company Number: US-AIMMUNE THERAPEUTICS, INC.-2023AIMT00381

PATIENT

DRUGS (5)
  1. PALFORZIA [Suspect]
     Active Substance: PEANUT
     Indication: Food allergy
     Dosage: IDE (0.5MG-6MG), ONCE
     Route: 048
     Dates: start: 20221130, end: 20221130
  2. PALFORZIA [Suspect]
     Active Substance: PEANUT
     Dosage: 200 MG, 1X/DAY
     Route: 048
     Dates: start: 20230411, end: 20230416
  3. PALFORZIA [Suspect]
     Active Substance: PEANUT
     Dosage: 200 MG, ONCE, LAST DOSE PRIOR TO EVENTS
     Route: 048
     Dates: start: 20230416, end: 20230416
  4. PALFORZIA [Suspect]
     Active Substance: PEANUT
     Dosage: 200 MG, 1X/DAY, RESTARTED
     Route: 048
     Dates: start: 20230418
  5. AUVI-Q [Concomitant]
     Active Substance: EPINEPHRINE
     Indication: Product used for unknown indication
     Dosage: ONLY FOR EMERGENCY

REACTIONS (2)
  - Gastrointestinal viral infection [Recovered/Resolved]
  - Vomiting [Recovered/Resolved]

NARRATIVE: CASE EVENT DATE: 20230417
